FAERS Safety Report 9255517 (Version 1)
Quarter: 2013Q2

REPORT INFORMATION
  Report Type: Spontaneous
  Country: FR (occurrence: None)
  Receive Date: 20130418
  Receipt Date: 20130418
  Transmission Date: 20140414
  Serious: Yes (Other)
  Sender: FDA-Public Use
  Company Number: 2013000093

PATIENT
  Age: 67 Year
  Sex: Male

DRUGS (2)
  1. ACEON (PERINDOPRIL ERBUMINE) TABLET [Suspect]
     Route: 048
     Dates: start: 201111, end: 201203
  2. PROCORALAN [Suspect]
     Route: 048
     Dates: start: 201111, end: 201205

REACTIONS (4)
  - Dyspnoea [None]
  - Conjunctivitis [None]
  - Myalgia [None]
  - Asthenia [None]
